FAERS Safety Report 5095860-8 (Version None)
Quarter: 2006Q3

REPORT INFORMATION
  Report Type: 
  Country: None (occurrence: None)
  Receive Date: 20060726
  Receipt Date: 20060512
  Transmission Date: 20061208
  Serious: No
  Sender: FDA-Public Use
  Company Number: 012237

PATIENT
  Age: 62 Year
  Sex: Female

DRUGS (3)
  1. PRIALT [Suspect]
     Indication: POST LAMINECTOMY SYNDROME
     Dosage: SEE IMAGE
     Route: 037
     Dates: start: 20051012, end: 20050101
  2. PRIALT [Suspect]
     Indication: POST LAMINECTOMY SYNDROME
     Dosage: SEE IMAGE
     Route: 037
     Dates: start: 20050101, end: 20051221
  3. HYDROMORPHONE HCL [Concomitant]

REACTIONS (1)
  - ACNE CYSTIC [None]
